FAERS Safety Report 9085087 (Version 1)
Quarter: 2013Q1

REPORT INFORMATION
  Report Type: Spontaneous
  Country: GB (occurrence: GB)
  Receive Date: 20130130
  Receipt Date: 20130130
  Transmission Date: 20140127
  Serious: Yes (Other)
  Sender: FDA-Public Use
  Company Number: PHFR2013GB000839

PATIENT
  Age: 10 Year
  Sex: Male

DRUGS (1)
  1. TEGRETOL [Suspect]
     Indication: EPILEPSY
     Dosage: 200 AND 100 MG
     Route: 048
     Dates: start: 201206

REACTIONS (2)
  - Excessive eye blinking [Not Recovered/Not Resolved]
  - Throat irritation [Not Recovered/Not Resolved]
